FAERS Safety Report 9475020 (Version 5)
Quarter: 2013Q4

REPORT INFORMATION
  Report Type: Spontaneous
  Country: CA (occurrence: CA)
  Receive Date: 20130824
  Receipt Date: 20131003
  Transmission Date: 20140711
  Serious: Yes (Other)
  Sender: FDA-Public Use
  Company Number: CA-ROCHE-1246429

PATIENT
  Age: 37 Year
  Sex: Female

DRUGS (11)
  1. XOLAIR [Suspect]
     Indication: ASTHMA
     Route: 058
     Dates: start: 20130628
  2. XOLAIR [Suspect]
     Route: 065
     Dates: end: 20130820
  3. XOLAIR [Suspect]
     Route: 065
     Dates: end: 20130911
  4. XOLAIR [Suspect]
     Route: 065
     Dates: start: 20130927
  5. METOCLOPRAMIDE [Concomitant]
  6. NORTRIPTYLINE [Concomitant]
  7. ADVAIR [Concomitant]
  8. FLOVENT [Concomitant]
  9. SINGULAIR [Concomitant]
  10. REACTINE (CANADA) [Concomitant]
  11. DILTIAZEM [Concomitant]

REACTIONS (6)
  - Headache [Recovered/Resolved]
  - Dizziness [Recovered/Resolved]
  - Dyspnoea [Recovered/Resolved]
  - Hot flush [Unknown]
  - Injection site reaction [Unknown]
  - Heart rate increased [Unknown]
